FAERS Safety Report 17492164 (Version 1)
Quarter: 2020Q1

REPORT INFORMATION
  Report Type: Spontaneous
  Country: US (occurrence: US)
  Receive Date: 20200303
  Receipt Date: 20200303
  Transmission Date: 20200409
  Serious: No
  Sender: FDA-Public Use
  Company Number: US-NOVOPROD-692271

PATIENT
  Age: 53 Year
  Sex: Female

DRUGS (3)
  1. VICTOZA [Suspect]
     Active Substance: LIRAGLUTIDE
     Dosage: 3.0 MG
     Route: 058
  2. VICTOZA [Suspect]
     Active Substance: LIRAGLUTIDE
     Dosage: 1.8 MG
     Route: 058
  3. VICTOZA [Suspect]
     Active Substance: LIRAGLUTIDE
     Indication: BLOOD INSULIN DECREASED
     Dosage: 2.4 MG
     Route: 058

REACTIONS (4)
  - Blood glucose abnormal [Unknown]
  - Blood glucose decreased [Recovered/Resolved]
  - Off label use [Unknown]
  - Malaise [Unknown]
